FAERS Safety Report 13382897 (Version 1)
Quarter: 2017Q1

REPORT INFORMATION
  Report Type: Spontaneous
  Country: SE (occurrence: SE)
  Receive Date: 20170329
  Receipt Date: 20170329
  Transmission Date: 20170429
  Serious: Yes (Hospitalization)
  Sender: FDA-Public Use
  Company Number: SE-PFIZER INC-2017128965

PATIENT
  Age: 66 Year
  Sex: Male

DRUGS (15)
  1. KALEORID [Concomitant]
     Active Substance: POTASSIUM CHLORIDE
     Dosage: UNK
  2. DOLCONTIN [Suspect]
     Active Substance: MORPHINE
     Indication: PAIN
     Dosage: 110 MG, 2X/DAY
     Route: 048
     Dates: start: 20141201, end: 20150901
  3. SELOKENZOC [Concomitant]
     Active Substance: METOPROLOL SUCCINATE
     Dosage: UNK
  4. DOLCONTIN [Suspect]
     Active Substance: MORPHINE
     Dosage: 60 MG, 2X/DAY
     Route: 048
  5. CAPECITABINE ACCORD [Concomitant]
     Active Substance: CAPECITABINE
     Dosage: UNK
     Dates: start: 20160813
  6. MORFIN MEDA [Concomitant]
     Active Substance: MORPHINE SULFATE
     Dosage: UNK
  7. SOBRIL [Concomitant]
     Active Substance: OXAZEPAM
     Dosage: UNK
  8. FRAGMIN [Concomitant]
     Active Substance: DALTEPARIN SODIUM
     Dosage: UNK
  9. SPIRONOLACTONE ORION [Concomitant]
     Active Substance: SPIRONOLACTONE
     Dosage: UNK
  10. FURIX [Concomitant]
     Active Substance: FUROSEMIDE
     Dosage: UNK
  11. LYRICA [Concomitant]
     Active Substance: PREGABALIN
     Dosage: UNK
  12. IMOVANE [Concomitant]
     Active Substance: ZOPICLONE
     Dosage: UNK
  13. ENALAPRIL ASTIMEX [Concomitant]
     Dosage: UNK
  14. ALVEDON [Concomitant]
     Active Substance: ACETAMINOPHEN
     Dosage: UNK
  15. XGEVA [Concomitant]
     Active Substance: DENOSUMAB
     Dosage: UNK

REACTIONS (5)
  - Fatigue [Recovered/Resolved]
  - Dizziness [Recovered/Resolved]
  - Muscular weakness [Recovered/Resolved]
  - Toxicity to various agents [Recovered/Resolved]
  - Somnolence [Recovered/Resolved]

NARRATIVE: CASE EVENT DATE: 20150901
